FAERS Safety Report 18415233 (Version 1)
Quarter: 2020Q4

REPORT INFORMATION
  Report Type: Spontaneous
  Country: GB (occurrence: GB)
  Receive Date: 20201022
  Receipt Date: 20201022
  Transmission Date: 20210114
  Serious: Yes (Hospitalization)
  Sender: FDA-Public Use
  Company Number: GB-TEVA-2020-GB-1840140

PATIENT
  Age: 92 Year
  Sex: Female

DRUGS (5)
  1. CARVEDILOL. [Concomitant]
     Active Substance: CARVEDILOL
     Dosage: 12.5MILIGRAM
  2. WARFARIN [Suspect]
     Active Substance: WARFARIN
     Indication: ATRIAL FIBRILLATION
     Dosage: TAKE AS PRESCRIBED IN ANTICOAGULANT TREATMENT BOOK:UNIT DOSE:1MILLIGRAM
     Dates: start: 20200102
  3. RAMIPRIL. [Concomitant]
     Active Substance: RAMIPRIL
     Dosage: 10MILLIGRAM
  4. BUMETANIDE. [Concomitant]
     Active Substance: BUMETANIDE
     Dosage: 1 MILLIGRAM DAILY; MORNING
  5. MONOMIL XL [Concomitant]
     Active Substance: ISOSORBIDE MONONITRATE
     Dosage: MORNING (HALF TABLET):UNIT DOSE:30MILLIGRAM

REACTIONS (3)
  - International normalised ratio increased [Unknown]
  - Urinary tract infection [Unknown]
  - Haematuria [Recovered/Resolved]
